FAERS Safety Report 6976253-2 (Version None)
Quarter: 2010Q3

REPORT INFORMATION
  Report Type: 
  Country: None (occurrence: None)
  Receive Date: 20100910
  Receipt Date: 20100831
  Transmission Date: 20110219
  Serious: Yes (Other)
  Sender: FDA-Public Use
  Company Number: CA-JNJFOC-20100901586

PATIENT
  Sex: Male
  Weight: 90 kg

DRUGS (11)
  1. REMICADE [Suspect]
     Indication: ANKYLOSING SPONDYLITIS
     Route: 042
  2. SPIRIVA [Concomitant]
  3. APO-SALVENT [Concomitant]
  4. CELEBREX [Concomitant]
  5. CODEINE [Concomitant]
  6. ASPIRIN [Concomitant]
  7. OXYCET [Concomitant]
  8. SENOKOT [Concomitant]
  9. VITAMIN D [Concomitant]
  10. CALCIUM [Concomitant]
  11. APO-CYCLOBENZAPRINE [Concomitant]

REACTIONS (3)
  - BLOOD PRESSURE INCREASED [None]
  - DYSPNOEA [None]
  - HEART RATE INCREASED [None]
